FAERS Safety Report 18311360 (Version 2)
Quarter: 2020Q4

REPORT INFORMATION
  Report Type: Spontaneous
  Country: BE (occurrence: BE)
  Receive Date: 20200925
  Receipt Date: 20201006
  Transmission Date: 20210113
  Serious: Yes (Life-Threatening, Hospitalization, Other)
  Sender: FDA-Public Use
  Company Number: BE-AUROBINDO-AUR-APL-2020-049598

PATIENT
  Age: 23 Year
  Sex: Male

DRUGS (1)
  1. PARACETAMOL [Suspect]
     Active Substance: ACETAMINOPHEN
     Indication: PRODUCT USED FOR UNKNOWN INDICATION
     Dosage: 10 GRAM TOTAL (OVER A 6H PERIOD)
     Route: 048

REACTIONS (10)
  - Intentional overdose [Unknown]
  - Renal tubular necrosis [Recovering/Resolving]
  - Nephropathy toxic [Recovering/Resolving]
  - Liver injury [Unknown]
  - Drug-induced liver injury [Unknown]
  - Oedematous kidney [Recovering/Resolving]
  - Epigastric discomfort [Unknown]
  - Drug level increased [Unknown]
  - Acute kidney injury [Recovering/Resolving]
  - Toxicity to various agents [Unknown]
